FAERS Safety Report 8035672-6 (Version None)
Quarter: 2011Q4

REPORT INFORMATION
  Report Type: 
  Country: None (occurrence: None)
  Receive Date: 20111222
  Receipt Date: 20111214
  Transmission Date: 20120403
  Serious: Yes (Other)
  Sender: FDA-Public Use
  Company Number: 7101680

PATIENT
  Sex: Female

DRUGS (1)
  1. LEVOTHYROXINE SODIUM [Suspect]
     Indication: CONGENITAL HYPOTHYROIDISM
     Dosage: 13 MCG PER KG

REACTIONS (1)
  - DRUG INEFFECTIVE [None]
